FAERS Safety Report 8533324-7 (Version None)
Quarter: 2012Q3

REPORT INFORMATION
  Report Type: 
  Country: None (occurrence: None)
  Receive Date: 20120717
  Receipt Date: 20120717
  Transmission Date: 20120928
  Serious: Yes (Other)
  Sender: FDA-Public Use
  Company Number: None

PATIENT
  Sex: Male

DRUGS (1)
  1. ENBREL [Suspect]
     Indication: ARTHRITIS
     Dosage: 50MG QW SQ  06/31/2012 TO CURRENT
     Route: 058
     Dates: start: 20120531

REACTIONS (2)
  - SUICIDAL IDEATION [None]
  - DEPRESSION [None]
